FAERS Safety Report 23170293 (Version 1)
Quarter: 2023Q4

REPORT INFORMATION
  Report Type: Spontaneous
  Country: US (occurrence: US)
  Receive Date: 20231110
  Receipt Date: 20231110
  Transmission Date: 20240110
  Serious: Yes (Other)
  Sender: FDA-Public Use
  Company Number: US-APOTEX-2023AP016372

PATIENT
  Age: 23 Year
  Sex: Male

DRUGS (18)
  1. LITHIUM [Interacting]
     Active Substance: LITHIUM
     Indication: Affective disorder
     Dosage: UNK
     Route: 065
  2. LITHIUM [Interacting]
     Active Substance: LITHIUM
     Indication: Agitation
  3. HALOPERIDOL [Interacting]
     Active Substance: HALOPERIDOL
     Indication: Affective disorder
     Dosage: UNK
     Route: 065
  4. HALOPERIDOL [Interacting]
     Active Substance: HALOPERIDOL
     Indication: Agitation
  5. PALIPERIDONE [Suspect]
     Active Substance: PALIPERIDONE
     Indication: Affective disorder
     Dosage: UNK
     Route: 065
  6. PALIPERIDONE [Suspect]
     Active Substance: PALIPERIDONE
     Indication: Agitation
  7. QUETIAPINE [Suspect]
     Active Substance: QUETIAPINE
     Indication: Affective disorder
     Dosage: UNK
     Route: 065
  8. QUETIAPINE [Suspect]
     Active Substance: QUETIAPINE
     Indication: Agitation
  9. PROPOFOL [Concomitant]
     Active Substance: PROPOFOL
     Indication: Affective disorder
     Dosage: UNK
     Route: 065
  10. PROPOFOL [Concomitant]
     Active Substance: PROPOFOL
     Indication: Agitation
  11. KETAMINE [Concomitant]
     Active Substance: KETAMINE
     Indication: Affective disorder
     Dosage: UNK
     Route: 065
  12. KETAMINE [Concomitant]
     Active Substance: KETAMINE
     Indication: Agitation
  13. VALPROATE [Concomitant]
     Active Substance: VALPROIC ACID
     Indication: Affective disorder
     Dosage: UNK
     Route: 065
  14. VALPROATE [Concomitant]
     Active Substance: VALPROIC ACID
     Indication: Agitation
  15. GUANFACINE [Concomitant]
     Active Substance: GUANFACINE
     Indication: Affective disorder
     Dosage: UNK
     Route: 065
  16. GUANFACINE [Concomitant]
     Active Substance: GUANFACINE
     Indication: Agitation
  17. LORAZEPAM [Concomitant]
     Active Substance: LORAZEPAM
     Indication: Affective disorder
     Dosage: UNK
     Route: 065
  18. LORAZEPAM [Concomitant]
     Active Substance: LORAZEPAM
     Indication: Agitation

REACTIONS (3)
  - Nephrogenic diabetes insipidus [Recovered/Resolved]
  - Drug interaction [Unknown]
  - Therapeutic response increased [Unknown]
